FAERS Safety Report 23698172 (Version 1)
Quarter: 2024Q2

REPORT INFORMATION
  Report Type: Spontaneous
  Country: AU (occurrence: None)
  Receive Date: 20240402
  Receipt Date: 20240402
  Transmission Date: 20240716
  Serious: Yes (Other)
  Sender: FDA-Public Use
  Company Number: 2024A073342

PATIENT
  Age: 80 Year
  Sex: Female

DRUGS (3)
  1. OSIMERTINIB [Suspect]
     Active Substance: OSIMERTINIB
     Indication: Lung adenocarcinoma stage II
     Route: 048
  2. CISPLATIN [Concomitant]
     Active Substance: CISPLATIN
  3. VINORELBINE [Concomitant]
     Active Substance: VINORELBINE TARTRATE

REACTIONS (5)
  - Metastases to central nervous system [Unknown]
  - Drug resistance [Unknown]
  - Malignant neoplasm progression [Unknown]
  - Metastases to lung [Unknown]
  - Gastrointestinal toxicity [Unknown]
